FAERS Safety Report 22130552 (Version 1)
Quarter: 2023Q1

REPORT INFORMATION
  Report Type: Spontaneous
  Country: US (occurrence: US)
  Receive Date: 20230323
  Receipt Date: 20230323
  Transmission Date: 20230418
  Serious: Yes (Hospitalization)
  Sender: FDA-Public Use
  Company Number: US-MYLANLABS-2023M1029243

PATIENT
  Age: 52 Year
  Sex: Male

DRUGS (1)
  1. TICAGRELOR [Suspect]
     Active Substance: TICAGRELOR
     Indication: Antiplatelet therapy
     Dosage: 180 MILLIGRAM
     Route: 065

REACTIONS (3)
  - Sinus node dysfunction [Recovered/Resolved]
  - Bradycardia [Recovered/Resolved]
  - Sinus arrest [Recovered/Resolved]
